FAERS Safety Report 8340194-9 (Version None)
Quarter: 2012Q2

REPORT INFORMATION
  Report Type: 
  Country: None (occurrence: None)
  Receive Date: 20120507
  Receipt Date: 20120426
  Transmission Date: 20120825
  Serious: Yes (Other)
  Sender: FDA-Public Use
  Company Number: TR-BRISTOL-MYERS SQUIBB COMPANY-16554180

PATIENT
  Age: 35 Year
  Sex: Male
  Weight: 75 kg

DRUGS (2)
  1. ABILIFY [Suspect]
     Indication: SCHIZOPHRENIA
     Dosage: INITIAL DOSE:5 MG. 26APR2012 REDUCED TO 15 MG.
     Route: 048
  2. CLOZAPINE [Suspect]

REACTIONS (2)
  - DYSURIA [None]
  - URINARY TRACT INFECTION [None]
